FAERS Safety Report 23820481 (Version 1)
Quarter: 2024Q2

REPORT INFORMATION
  Report Type: Spontaneous
  Country: US (occurrence: None)
  Receive Date: 20240503
  Receipt Date: 20240503
  Transmission Date: 20240716
  Serious: No
  Sender: FDA-Public Use
  Company Number: None

PATIENT
  Sex: Female

DRUGS (1)
  1. PROLIA [Suspect]
     Active Substance: DENOSUMAB
     Indication: Osteoporosis
     Dosage: OTHER QUANTITY : 60/1 MG/ML;?OTHER FREQUENCY : Q 180DAYS;?
     Route: 058
     Dates: end: 20231106

REACTIONS (1)
  - Adverse drug reaction [None]
